FAERS Safety Report 15088323 (Version 2)
Quarter: 2018Q3

REPORT INFORMATION
  Report Type: Report from Study
  Country: US (occurrence: US)
  Receive Date: 20180629
  Receipt Date: 20180808
  Transmission Date: 20181010
  Serious: Yes (Death, Hospitalization)
  Sender: FDA-Public Use
  Company Number: US-ROCHE-2143012

PATIENT
  Age: 61 Year
  Sex: Female
  Weight: 52.7 kg

DRUGS (10)
  1. OMEPRAZOLE. [Concomitant]
     Active Substance: OMEPRAZOLE
     Route: 065
     Dates: start: 20180611, end: 20180618
  2. BUDEPRION XL [Concomitant]
     Active Substance: BUPROPION HYDROCHLORIDE
     Dosage: 24 HOUR
     Route: 065
     Dates: start: 19790529, end: 20180622
  3. PREDNISONE. [Concomitant]
     Active Substance: PREDNISONE
     Route: 065
     Dates: start: 20180611, end: 20180619
  4. LACTULOSE. [Concomitant]
     Active Substance: LACTULOSE
     Dosage: 20 GM/30 ML
     Route: 065
     Dates: start: 20180614, end: 20180618
  5. KEFLEX [Concomitant]
     Active Substance: CEPHALEXIN
     Route: 065
     Dates: start: 20180614, end: 20180618
  6. ONDANSETRON [Concomitant]
     Active Substance: ONDANSETRON
     Route: 065
     Dates: start: 20180524, end: 20180622
  7. ATEZOLIZUMAB. [Suspect]
     Active Substance: ATEZOLIZUMAB
     Indication: NEOPLASM
     Dosage: MOST RECENT DOSE PRIOR TO SAE 04/JUN/2018
     Route: 042
     Dates: start: 20180604, end: 20180620
  8. OXYCODONE [Concomitant]
     Active Substance: OXYCODONE
     Route: 065
     Dates: start: 20180611, end: 20180620
  9. RO 7009789 (CD40 AGONIST) [Suspect]
     Active Substance: INVESTIGATIONAL PRODUCT
     Indication: NEOPLASM
     Dosage: MOST RECENT DOSE PRIOR TO SAE 05/JUN/2018
     Route: 058
     Dates: start: 20180605, end: 20180622
  10. METHADONE [Concomitant]
     Active Substance: METHADONE HYDROCHLORIDE
     Route: 065
     Dates: start: 20180611, end: 20180611

REACTIONS (1)
  - Hypoxia [Fatal]

NARRATIVE: CASE EVENT DATE: 20180616
